FAERS Safety Report 5447591-X (Version None)
Quarter: 2007Q3

REPORT INFORMATION
  Report Type: 
  Country: None (occurrence: None)
  Receive Date: 20070905
  Receipt Date: 20070905
  Transmission Date: 20080115
  Serious: Yes (Hospitalization)
  Sender: FDA-Public Use
  Company Number: None

PATIENT
  Age: 83 Year
  Sex: Female
  Weight: 54.5 kg

DRUGS (1)
  1. GENTAMICIN [Suspect]
     Indication: SEPSIS
     Dosage: 100MG 1X IV DRIP 1 DOSE
     Route: 041

REACTIONS (1)
  - DRUG ADMINISTRATION ERROR [None]
